FAERS Safety Report 7275210-9 (Version None)
Quarter: 2011Q1

REPORT INFORMATION
  Report Type: 
  Country: None (occurrence: None)
  Receive Date: 20110204
  Receipt Date: 20110126
  Transmission Date: 20110831
  Serious: Yes (Hospitalization)
  Sender: FDA-Public Use
  Company Number: PHHY2010US70766

PATIENT
  Sex: Female
  Weight: 61 kg

DRUGS (2)
  1. EXJADE [Suspect]
     Indication: SICKLE CELL ANAEMIA
     Dosage: 1250 MG, QD
     Route: 048
     Dates: start: 20100801
  2. EXJADE [Suspect]
     Dosage: 1250 MG, EVERY OTHER DAY OR TWO DAYS

REACTIONS (2)
  - FEELING ABNORMAL [None]
  - PNEUMONIA [None]
